FAERS Safety Report 6093025-4 (Version None)
Quarter: 2009Q1

REPORT INFORMATION
  Report Type: 
  Country: None (occurrence: None)
  Receive Date: 20090224
  Receipt Date: 20081010
  Transmission Date: 20090719
  Serious: Yes (Other)
  Sender: FDA-Public Use
  Company Number: 2008EU001728

PATIENT
  Age: 75 Year
  Sex: Female

DRUGS (1)
  1. VESICARE [Suspect]
     Indication: HYPERTONIC BLADDER
     Dosage: 5 MG, UID/QD; ORAL
     Route: 048
     Dates: start: 20080601, end: 20080601

REACTIONS (8)
  - ALOPECIA [None]
  - DRY MOUTH [None]
  - IMPAIRED DRIVING ABILITY [None]
  - NAUSEA [None]
  - ORBITAL OEDEMA [None]
  - SKIN DISORDER [None]
  - VISUAL ACUITY REDUCED [None]
  - WEIGHT DECREASED [None]
